FAERS Safety Report 8290067-5 (Version None)
Quarter: 2012Q1

REPORT INFORMATION
  Report Type: 
  Country: None (occurrence: None)
  Receive Date: 20120316
  Receipt Date: 20090819
  Transmission Date: 20120608
  Serious: Yes (Other)
  Sender: FDA-Public Use
  Company Number: PHEH2009US09620

PATIENT
  Age: 92 Year
  Sex: Female

DRUGS (1)
  1. TEKTURNA [Suspect]

REACTIONS (1)
  - ANGIOEDEMA [None]
